FAERS Safety Report 10432371 (Version 1)
Quarter: 2014Q3

REPORT INFORMATION
  Report Type: Spontaneous
  Country: US (occurrence: None)
  Receive Date: 20140815
  Receipt Date: 20140815
  Transmission Date: 20150326
  Serious: Yes (Disabling)
  Sender: FDA-Public Use
  Company Number: A-US2014-100676

PATIENT
  Age: 71 Year
  Sex: Male

DRUGS (3)
  1. OPSUMIT [Suspect]
     Active Substance: MACITENTAN
     Indication: PULMONARY ARTERIAL HYPERTENSION
     Route: 048
     Dates: start: 20131201
  2. RIOCIGUAT [Concomitant]
     Active Substance: RIOCIGUAT
  3. REVATIO (SILDENAFIL CITRATE) [Concomitant]

REACTIONS (6)
  - Dyspnoea [None]
  - Localised oedema [None]
  - Vascular test abnormal [None]
  - Oedema [None]
  - Oedema peripheral [None]
  - Dyspnoea exertional [None]

NARRATIVE: CASE EVENT DATE: 20140606
